FAERS Safety Report 6585905-8 (Version None)
Quarter: 2010Q1

REPORT INFORMATION
  Report Type: 
  Country: None (occurrence: None)
  Receive Date: 20100217
  Receipt Date: 20100215
  Transmission Date: 20100710
  Serious: Yes (Death)
  Sender: FDA-Public Use
  Company Number: PHHO2010AR02620

PATIENT
  Sex: Male

DRUGS (6)
  1. DICLOFENAC [Suspect]
     Dosage: UNK
     Dates: start: 20030201, end: 20100128
  2. DOCETAXEL [Suspect]
     Indication: PROSTATE CANCER
     Dosage: 152.25 MG EVERY 1/3 WEEK
     Route: 042
     Dates: start: 20091028, end: 20100126
  3. PREDNISONE [Suspect]
     Indication: PROSTATE CANCER
     Dosage: 10 MG, QD
     Route: 048
     Dates: start: 20091028, end: 20100128
  4. DEXAMETHASONE [Suspect]
     Indication: PREMEDICATION
     Dosage: 8 MG 3/1 DAY
     Dates: start: 20091028, end: 20100126
  5. ACETYLSALICYLIC ACID [Suspect]
     Dosage: UNK
     Dates: start: 20030801, end: 20100128
  6. DASATINIB [Suspect]
     Indication: PROSTATE CANCER
     Dosage: 100 MG, QD
     Route: 048
     Dates: start: 20091029, end: 20100128

REACTIONS (3)
  - CARDIOGENIC SHOCK [None]
  - GASTROINTESTINAL HAEMORRHAGE [None]
  - HAEMATEMESIS [None]
